FAERS Safety Report 21269149 (Version 4)
Quarter: 2022Q4

REPORT INFORMATION
  Report Type: Report from Study
  Country: AR (occurrence: AR)
  Receive Date: 20220830
  Receipt Date: 20221012
  Transmission Date: 20230113
  Serious: Yes (Life-Threatening, Hospitalization, Other)
  Sender: FDA-Public Use
  Company Number: AR-BRISTOL-MYERS SQUIBB COMPANY-2022-090142

PATIENT
  Age: 67 Year
  Sex: Male
  Weight: 100 kg

DRUGS (10)
  1. IPILIMUMAB [Suspect]
     Active Substance: IPILIMUMAB
     Indication: Hepatocellular carcinoma
     Dosage: MG
     Route: 065
     Dates: start: 20210806, end: 20210806
  2. IPILIMUMAB [Suspect]
     Active Substance: IPILIMUMAB
     Route: 065
     Dates: start: 20211007, end: 20211007
  3. FUROSEMIDE [Concomitant]
     Active Substance: FUROSEMIDE
     Indication: Adverse event
     Route: 048
     Dates: start: 20211111
  4. LORATADINE [Concomitant]
     Active Substance: LORATADINE
     Indication: Adverse event
     Route: 048
     Dates: start: 20210826
  5. ACETAMINOPHEN [Concomitant]
     Active Substance: ACETAMINOPHEN
     Indication: Adverse event
     Route: 048
     Dates: start: 20211115
  6. OMEPRAZOLE [Concomitant]
     Active Substance: OMEPRAZOLE
     Indication: Product used for unknown indication
     Route: 048
     Dates: start: 2021
  7. OMEPRAZOLE [Concomitant]
     Active Substance: OMEPRAZOLE
     Route: 048
     Dates: start: 20220720
  8. DEXAMETHASONE [Concomitant]
     Active Substance: DEXAMETHASONE
     Indication: Adverse event
     Route: 048
     Dates: start: 20220720, end: 20220802
  9. DIFENHIDRAMINE [Concomitant]
     Indication: Adverse event
     Dosage: 2 UNIT NOT SPECIFIED
     Route: 061
     Dates: start: 20210910
  10. MODERNA COVID19 (VACCINE) [Concomitant]
     Indication: Prophylaxis
     Route: 030
     Dates: start: 20210826

REACTIONS (2)
  - Pneumonitis [Recovered/Resolved]
  - Condition aggravated [Recovered/Resolved]

NARRATIVE: CASE EVENT DATE: 20220813
